FAERS Safety Report 18397147 (Version 27)
Quarter: 2025Q4

REPORT INFORMATION
  Report Type: Report from Study
  Country: US (occurrence: US)
  Receive Date: 20201019
  Receipt Date: 20251006
  Transmission Date: 20260118
  Serious: Yes (Other)
  Sender: TAKEDA
  Company Number: US-SHIRE-US202034168

PATIENT
  Sex: Male
  Weight: 80 kg

DRUGS (46)
  1. HUMAN IMMUNOGLOBULIN G [Suspect]
     Active Substance: HUMAN IMMUNOGLOBULIN G
     Indication: Immunodeficiency common variable
     Dosage: 40 GRAM, Q3WEEKS
     Dates: start: 20160221
  2. HUMAN IMMUNOGLOBULIN G [Suspect]
     Active Substance: HUMAN IMMUNOGLOBULIN G
     Dosage: 40 GRAM, Q3WEEKS
     Dates: start: 20200622
  3. HUMAN IMMUNOGLOBULIN G [Suspect]
     Active Substance: HUMAN IMMUNOGLOBULIN G
     Dosage: 1 INTERNATIONAL UNIT, Q3WEEKS
  4. HUMAN IMMUNOGLOBULIN G [Suspect]
     Active Substance: HUMAN IMMUNOGLOBULIN G
     Dosage: 40 GRAM, Q3WEEKS
  5. CUVITRU [Suspect]
     Active Substance: HUMAN IMMUNOGLOBULIN G
     Indication: Product used for unknown indication
     Dosage: 12 GRAM, 1/WEEK
     Dates: start: 20201214
  6. EPINEPHRINE [Concomitant]
     Active Substance: EPINEPHRINE
     Dosage: UNK
  7. ACETAMINOPHEN [Concomitant]
     Active Substance: ACETAMINOPHEN
     Dosage: UNK
  8. ZYRTEC [Concomitant]
     Active Substance: CETIRIZINE HYDROCHLORIDE
     Dosage: UNK
  9. NEXIUM [Concomitant]
     Active Substance: ESOMEPRAZOLE MAGNESIUM
     Dosage: UNK
  10. TIZANIDINE HYDROCHLORIDE [Concomitant]
     Active Substance: TIZANIDINE HYDROCHLORIDE
     Dosage: UNK
  11. DIPHENHYDRAMINE [Concomitant]
     Active Substance: DIPHENHYDRAMINE
     Dosage: UNK
  12. SODIUM CHLORIDE [Concomitant]
     Active Substance: SODIUM CHLORIDE
     Dosage: UNK
  13. Lmx [Concomitant]
     Dosage: UNK
  14. PREDNISONE [Concomitant]
     Active Substance: PREDNISONE
     Dosage: UNK
  15. VITAMIN D3 [Concomitant]
     Active Substance: CHOLECALCIFEROL
     Dosage: UNK
  16. KLONOPIN [Concomitant]
     Active Substance: CLONAZEPAM
     Dosage: UNK
  17. ZOFRAN [Concomitant]
     Active Substance: ONDANSETRON HYDROCHLORIDE
     Dosage: UNK
  18. VENTOLIN HFA [Concomitant]
     Active Substance: ALBUTEROL SULFATE
     Dosage: UNK
  19. ENTOCORT EC [Concomitant]
     Active Substance: BUDESONIDE
     Dosage: UNK
  20. HYOSCYAMINE SULFATE [Concomitant]
     Active Substance: HYOSCYAMINE SULFATE
     Dosage: UNK
  21. ATENOLOL [Concomitant]
     Active Substance: ATENOLOL
     Dosage: UNK
  22. MIRALAX [Concomitant]
     Active Substance: POLYETHYLENE GLYCOL 3350
     Dosage: UNK
  23. ZINC [Concomitant]
     Active Substance: ZINC
     Dosage: UNK
  24. MAGNESIUM [Concomitant]
     Active Substance: MAGNESIUM
     Dosage: UNK
  25. CLARITIN-D NOS [Concomitant]
     Active Substance: LORATADINE\PSEUDOEPHEDRINE SULFATE
     Dosage: UNK
  26. NORCO [Concomitant]
     Active Substance: ACETAMINOPHEN\HYDROCODONE BITARTRATE
     Dosage: UNK
  27. ACYCLOVIR [Concomitant]
     Active Substance: ACYCLOVIR
     Dosage: UNK
  28. XOPENEX HFA [Concomitant]
     Active Substance: LEVALBUTEROL TARTRATE
     Dosage: UNK
  29. ALBUTEROL SULFATE [Concomitant]
     Active Substance: ALBUTEROL SULFATE
     Dosage: UNK
  30. ZITHROMAX [Concomitant]
     Active Substance: AZITHROMYCIN DIHYDRATE
     Dosage: UNK
  31. DOXYCYCLINE HYCLATE [Concomitant]
     Active Substance: DOXYCYCLINE HYCLATE
     Dosage: UNK
  32. LIDOCAINE [Concomitant]
     Active Substance: LIDOCAINE
     Dosage: UNK
  33. LEVALBUTEROL TARTRATE [Concomitant]
     Active Substance: LEVALBUTEROL TARTRATE
     Dosage: UNK
  34. MORPHINE SULFATE [Concomitant]
     Active Substance: MORPHINE SULFATE
  35. ALBUTEROL SULFATE [Concomitant]
     Active Substance: ALBUTEROL SULFATE
     Dosage: UNK
  36. BENADRYL [Concomitant]
     Active Substance: DIPHENHYDRAMINE HYDROCHLORIDE
  37. DIPHENHYDRAMINE HYDROCHLORIDE [Concomitant]
     Active Substance: DIPHENHYDRAMINE HYDROCHLORIDE
  38. TROMETHAMINE [Concomitant]
     Active Substance: TROMETHAMINE
     Dosage: UNK
  39. COMPAZINE [Concomitant]
     Active Substance: PROCHLORPERAZINE MALEATE
     Dosage: 5 MILLIGRAM
  40. TAGAMET HB [Concomitant]
     Active Substance: CIMETIDINE
     Dosage: UNK
  41. AMITRIPTYLINE HYDROCHLORIDE [Concomitant]
     Active Substance: AMITRIPTYLINE HYDROCHLORIDE
     Dosage: 10 MILLIGRAM
  42. PRAMIPEXOLE DIHYDROCHLORIDE [Concomitant]
     Active Substance: PRAMIPEXOLE DIHYDROCHLORIDE
     Dosage: UNK
  43. VITAMIN C [Concomitant]
     Active Substance: ASCORBIC ACID
     Dosage: UNK
  44. ONDANSETRON HYDROCHLORIDE [Concomitant]
     Active Substance: ONDANSETRON HYDROCHLORIDE
     Dosage: UNK
  45. ERYTHROMYCIN [Concomitant]
     Active Substance: ERYTHROMYCIN
     Dosage: UNK
  46. CETIRIZINE HYDROCHLORIDE [Concomitant]
     Active Substance: CETIRIZINE HYDROCHLORIDE
     Dosage: UNK

REACTIONS (36)
  - Prostate infection [Unknown]
  - Cellulitis [Unknown]
  - Infected cyst [Recovered/Resolved]
  - Epididymitis [Not Recovered/Not Resolved]
  - Ear infection fungal [Unknown]
  - Infection [Unknown]
  - Ear infection [Not Recovered/Not Resolved]
  - Chronic sinusitis [Unknown]
  - Infected bite [Unknown]
  - Weight decreased [Unknown]
  - Ulcer [Unknown]
  - Fungal infection [Unknown]
  - Device infusion issue [Unknown]
  - Genital infection fungal [Unknown]
  - Post procedural infection [Unknown]
  - Inflammation [Unknown]
  - Dermatitis contact [Unknown]
  - Foreign body in mouth [Unknown]
  - Eating disorder [Unknown]
  - Weight fluctuation [Unknown]
  - Scab [Recovering/Resolving]
  - Sinusitis [Unknown]
  - Irritability [Unknown]
  - Feeling abnormal [Unknown]
  - Injection site swelling [Unknown]
  - Infusion site bruising [Unknown]
  - Injection site erythema [Unknown]
  - Injection site pain [Unknown]
  - Erythema [Not Recovered/Not Resolved]
  - Paraesthesia [Unknown]
  - Vomiting [Unknown]
  - Hyperhidrosis [Unknown]
  - Pruritus [Unknown]
  - Eye discharge [Unknown]
  - Eye infection [Unknown]
  - Localised infection [Unknown]
